FAERS Safety Report 5669062-8 (Version None)
Quarter: 2008Q1

REPORT INFORMATION
  Report Type: 
  Country: None (occurrence: None)
  Receive Date: 20080317
  Receipt Date: 20080305
  Transmission Date: 20080703
  Serious: Yes (Other)
  Sender: FDA-Public Use
  Company Number: AU-NOVOPROD-272953

PATIENT
  Age: 3 Day
  Sex: Female
  Weight: 2.7 kg

DRUGS (1)
  1. NOVOSEVEN [Suspect]
     Indication: HAEMORRHAGE
     Dosage: .36 MG, UNK
     Route: 042
     Dates: start: 20071104

REACTIONS (2)
  - CEPHALHAEMATOMA [None]
  - CEREBRAL INFARCTION [None]
